FAERS Safety Report 9061774 (Version 1)
Quarter: 2013Q1

REPORT INFORMATION
  Report Type: Spontaneous
  Country: US (occurrence: None)
  Receive Date: 20130122
  Receipt Date: 20130122
  Transmission Date: 20140127
  Serious: Yes (Death)
  Sender: FDA-Public Use
  Company Number: 2013MA000221

PATIENT
  Age: 65 Year
  Sex: Female

DRUGS (3)
  1. KADIAN [Suspect]
     Indication: PRODUCT USED FOR UNKNOWN INDICATION
     Dosage: ; UNK; UNK
  2. CITALOPRAM HYDROBROMIDE TABLETS, 40 MG (PUREPAC) [Suspect]
     Dosage: ; UNK; UNK
  3. METOCLOPRAMIDE [Suspect]

REACTIONS (1)
  - Death [None]
